FAERS Safety Report 25914261 (Version 2)
Quarter: 2025Q4

REPORT INFORMATION
  Report Type: Other
  Country: GB (occurrence: GB)
  Receive Date: 20251013
  Receipt Date: 20251016
  Transmission Date: 20260117
  Serious: Yes (Other)
  Sender: GLENMARK
  Company Number: None

PATIENT
  Age: 60 Year
  Sex: Female
  Weight: 56 kg

DRUGS (3)
  1. MOMETASONE FUROATE\OLOPATADINE HYDROCHLORIDE [Suspect]
     Active Substance: MOMETASONE FUROATE\OLOPATADINE HYDROCHLORIDE
     Indication: Nasal congestion
     Dosage: BID (2 SPRAYS IN EACH NOSTRIL, TWICE EACH DAY)
     Route: 045
     Dates: start: 20250908
  2. MOMETASONE FUROATE\OLOPATADINE HYDROCHLORIDE [Suspect]
     Active Substance: MOMETASONE FUROATE\OLOPATADINE HYDROCHLORIDE
     Indication: Ear congestion
  3. OLOPATADINE [Suspect]
     Active Substance: OLOPATADINE
     Indication: Product used for unknown indication
     Dosage: UNK
     Route: 065

REACTIONS (5)
  - Brain fog [Recovering/Resolving]
  - Muscle fatigue [Recovering/Resolving]
  - Sinus headache [Recovering/Resolving]
  - Tinnitus [Not Recovered/Not Resolved]
  - Somnolence [Recovering/Resolving]
